FAERS Safety Report 19607296 (Version 1)
Quarter: 2021Q3

REPORT INFORMATION
  Report Type: Spontaneous
  Country: KR (occurrence: KR)
  Receive Date: 20210726
  Receipt Date: 20210726
  Transmission Date: 20211014
  Serious: Yes (Other)
  Sender: FDA-Public Use
  Company Number: KR-JNJFOC-20210740396

PATIENT
  Age: 42 Year
  Sex: Female

DRUGS (6)
  1. LEVOFLOXACIN. [Suspect]
     Active Substance: LEVOFLOXACIN
     Indication: TUBERCULOSIS
     Route: 065
  2. KANAMYCIN [Suspect]
     Active Substance: KANAMYCIN A SULFATE
     Indication: TUBERCULOSIS
     Route: 065
  3. DELAMANID [Suspect]
     Active Substance: DELAMANID
     Indication: TUBERCULOSIS
     Route: 065
  4. SIRTURO [Suspect]
     Active Substance: BEDAQUILINE FUMARATE
     Indication: TUBERCULOSIS
     Route: 048
  5. PROTHIONAMIDE [Suspect]
     Active Substance: PROTIONAMIDE
     Indication: TUBERCULOSIS
     Route: 065
  6. CYCLOSERINE. [Suspect]
     Active Substance: CYCLOSERINE
     Indication: TUBERCULOSIS
     Route: 065

REACTIONS (4)
  - Dyspnoea [Unknown]
  - Arthralgia [Unknown]
  - Drug reaction with eosinophilia and systemic symptoms [Unknown]
  - Nausea [Unknown]
